FAERS Safety Report 21868767 (Version 1)
Quarter: 2023Q1

REPORT INFORMATION
  Report Type: Spontaneous
  Country: FR (occurrence: FR)
  Receive Date: 20230117
  Receipt Date: 20230117
  Transmission Date: 20230418
  Serious: Yes (Hospitalization)
  Sender: FDA-Public Use
  Company Number: None

PATIENT
  Age: 38 Year
  Sex: Female

DRUGS (3)
  1. CARBOPLATIN [Suspect]
     Active Substance: CARBOPLATIN
     Indication: Invasive ductal breast carcinoma
     Dosage: 2 TIMES ON 19.07 AND 27.07
     Dates: start: 20220719, end: 20220802
  2. TAXOL [Suspect]
     Active Substance: PACLITAXEL
     Indication: Invasive ductal breast carcinoma
     Dosage: 2 TIMES ON 19.07 AND 27.07
     Dates: start: 20220719, end: 20220802
  3. PEMBROLIZUMAB [Suspect]
     Active Substance: PEMBROLIZUMAB
     Indication: Invasive ductal breast carcinoma
     Dosage: 1 INFUSION ON 19.07
     Dates: start: 20220719, end: 20220802

REACTIONS (1)
  - Rash maculo-papular [Recovered/Resolved]

NARRATIVE: CASE EVENT DATE: 20220726
